FAERS Safety Report 16208814 (Version 1)
Quarter: 2019Q2

REPORT INFORMATION
  Report Type: Report from Study
  Country: US (occurrence: US)
  Receive Date: 20190417
  Receipt Date: 20190417
  Transmission Date: 20190711
  Serious: Yes (Other)
  Sender: FDA-Public Use
  Company Number: US-ALEXION-A201905717

PATIENT
  Age: 26 Year
  Sex: Female

DRUGS (1)
  1. SOLIRIS [Suspect]
     Active Substance: ECULIZUMAB
     Indication: PAROXYSMAL NOCTURNAL HAEMOGLOBINURIA
     Dosage: UNK
     Route: 042

REACTIONS (22)
  - Portal vein thrombosis [Not Recovered/Not Resolved]
  - Adjustment disorder [Not Recovered/Not Resolved]
  - Blood sodium decreased [Unknown]
  - Blood bilirubin increased [Unknown]
  - Blood urea decreased [Unknown]
  - Mean cell haemoglobin increased [Unknown]
  - Haemoglobin decreased [Unknown]
  - White blood cell count decreased [Unknown]
  - Mean cell volume increased [Unknown]
  - Pain in extremity [Not Recovered/Not Resolved]
  - Neutrophil count decreased [Unknown]
  - Hepatic vein thrombosis [Unknown]
  - Pulmonary embolism [Not Recovered/Not Resolved]
  - Platelet count decreased [Unknown]
  - Red blood cell count decreased [Unknown]
  - Obesity [Not Recovered/Not Resolved]
  - Blood calcium decreased [Unknown]
  - Alanine aminotransferase increased [Unknown]
  - Appendicectomy [Unknown]
  - Headache [Unknown]
  - Blood lactate dehydrogenase increased [Unknown]
  - Haematocrit decreased [Unknown]

NARRATIVE: CASE EVENT DATE: 20180511
